FAERS Safety Report 4347798-9 (Version None)
Quarter: 2004Q2

REPORT INFORMATION
  Report Type: 
  Country: None (occurrence: None)
  Receive Date: 20040422
  Receipt Date: 20040402
  Transmission Date: 20050107
  Serious: Yes (Disabling)
  Sender: FDA-Public Use
  Company Number: USA040463878

PATIENT
  Age: 36 Year
  Sex: Male

DRUGS (2)
  1. HUMULIN N [Suspect]
     Indication: DIABETES MELLITUS
     Dosage: 96 U DAY
  2. HUMULIN R [Suspect]
     Indication: DIABETES MELLITUS
     Dosage: 8 U/3 DAY

REACTIONS (4)
  - BLINDNESS [None]
  - HYPERTENSION [None]
  - NEUROPATHY [None]
  - RETINOPATHY [None]
